FAERS Safety Report 24302241 (Version 1)
Quarter: 2024Q3

REPORT INFORMATION
  Report Type: Spontaneous
  Country: US (occurrence: US)
  Receive Date: 20240910
  Receipt Date: 20240910
  Transmission Date: 20241017
  Serious: Yes (Other)
  Sender: TEVA
  Company Number: US-TEVA-VS-3217595

PATIENT

DRUGS (4)
  1. HYDROXYZINE [Suspect]
     Active Substance: HYDROXYZINE HYDROCHLORIDE
     Indication: Anxiety
     Route: 064
     Dates: start: 20220601
  2. RIZATRIPTAN [Suspect]
     Active Substance: RIZATRIPTAN
     Indication: Migraine
     Route: 064
     Dates: start: 20220601
  3. LEVOMILNACIPRAN [Suspect]
     Active Substance: LEVOMILNACIPRAN
     Indication: Depression
     Route: 064
     Dates: start: 20220601
  4. REXULTI [Suspect]
     Active Substance: BREXPIPRAZOLE
     Indication: Depression
     Route: 064
     Dates: start: 20220601

REACTIONS (4)
  - Cyanosis neonatal [Recovered/Resolved]
  - Foetal exposure during pregnancy [Unknown]
  - Oxygen saturation decreased [Unknown]
  - Secretion discharge [Unknown]

NARRATIVE: CASE EVENT DATE: 20230316
